FAERS Safety Report 23687119 (Version 1)
Quarter: 2024Q1

REPORT INFORMATION
  Report Type: Spontaneous
  Country: JP (occurrence: JP)
  Receive Date: 20240329
  Receipt Date: 20240329
  Transmission Date: 20240410
  Serious: Yes (Hospitalization, Other)
  Sender: FDA-Public Use
  Company Number: JP-MSD-2402JPN002323J

PATIENT
  Age: 84 Year
  Sex: Male

DRUGS (2)
  1. STROMECTOL [Suspect]
     Active Substance: IVERMECTIN
     Indication: Acarodermatitis
     Dosage: 9 MILLIGRAM/DAY
     Route: 048
     Dates: start: 20240206, end: 20240206
  2. STROMECTOL [Suspect]
     Active Substance: IVERMECTIN
     Dosage: 9 MILLIGRAM/DAY
     Route: 048
     Dates: start: 20240213, end: 20240213

REACTIONS (2)
  - Pneumonia aspiration [Recovered/Resolved]
  - Vomiting [Recovered/Resolved]

NARRATIVE: CASE EVENT DATE: 20240213
